FAERS Safety Report 8486514-6 (Version None)
Quarter: 2012Q3

REPORT INFORMATION
  Report Type: 
  Country: None (occurrence: None)
  Receive Date: 20120703
  Receipt Date: 20120627
  Transmission Date: 20120928
  Serious: Yes (Death, Hospitalization, Other)
  Sender: FDA-Public Use
  Company Number: JP-ALLERGAN-1208580US

PATIENT
  Age: 84 Year

DRUGS (5)
  1. FAMODITINE [Concomitant]
  2. BOTOX [Suspect]
     Indication: MUSCLE CONTRACTURE
  3. FUROSEMIDE [Concomitant]
  4. MAGLAX [Concomitant]
  5. BOTOX [Suspect]
     Indication: MUSCLE SPASMS
     Dosage: 50 UNITS, SINGLE
     Route: 030
     Dates: start: 20120512, end: 20120512

REACTIONS (2)
  - PNEUMONIA ASPIRATION [None]
  - PYREXIA [None]
